FAERS Safety Report 16133914 (Version 1)
Quarter: 2019Q1

REPORT INFORMATION
  Report Type: Other
  Country: CA (occurrence: CA)
  Receive Date: 20190329
  Receipt Date: 20190329
  Transmission Date: 20190418
  Serious: Yes (Hospitalization, Other)
  Sender: FDA-Public Use
  Company Number: CA-APOTEX-2019AP010163

PATIENT
  Age: 37 Year
  Sex: Female

DRUGS (1)
  1. SALBUTAMOL [Suspect]
     Active Substance: ALBUTEROL
     Indication: ASTHMA
     Dosage: UNK
     Route: 065

REACTIONS (19)
  - Infection [Unknown]
  - Lower respiratory tract infection [Unknown]
  - Sinus operation [Unknown]
  - Fallopian tube operation [Unknown]
  - Microbiology test abnormal [Unknown]
  - Paranasal sinus polypectomy [Unknown]
  - Sinusitis [Unknown]
  - Chest pain [Unknown]
  - Cholelithiasis [Unknown]
  - Cough [Unknown]
  - Pain [Unknown]
  - Central venous catheterisation [Unknown]
  - Dyspnoea [Unknown]
  - Adrenal insufficiency [Unknown]
  - Diabetes mellitus [Unknown]
  - Sinusitis aspergillus [Unknown]
  - Intestinal perforation [Unknown]
  - Lung infection [Unknown]
  - Osteoporosis [Unknown]
